FAERS Safety Report 9945508 (Version 1)
Quarter: 2014Q1

REPORT INFORMATION
  Report Type: Report from Study
  Country: US (occurrence: US)
  Receive Date: 20140303
  Receipt Date: 20140303
  Transmission Date: 20141002
  Serious: No
  Sender: FDA-Public Use
  Company Number: US-ABBVIE-13P-163-1050831-00

PATIENT
  Age: 56 Year
  Sex: Male

DRUGS (15)
  1. HUMIRA [Suspect]
     Indication: CROHN^S DISEASE
     Dates: start: 20130122, end: 20130122
  2. HUMIRA [Suspect]
     Dates: start: 20130205, end: 20130205
  3. HUMIRA [Suspect]
     Dates: start: 20130205
  4. ADVAIR [Concomitant]
     Indication: ASTHMA
     Dosage: 500/50 MG 2 PUFFS DAILY
  5. FLUTICASONE [Concomitant]
     Indication: ASTHMA
  6. ALBUTEROL [Concomitant]
     Indication: ASTHMA
     Dosage: NEBULIZER AS NEEDED
  7. NEXIUM [Concomitant]
     Indication: GASTROOESOPHAGEAL REFLUX DISEASE
     Dosage: 40 MG DAILY
  8. ZYRTEC [Concomitant]
     Indication: HYPERSENSITIVITY
     Dosage: 10 MG DAILY
     Route: 048
  9. MERCAPTOPURINE [Concomitant]
     Indication: PRODUCT USED FOR UNKNOWN INDICATION
  10. COLAZAL [Concomitant]
     Indication: CROHN^S DISEASE
     Route: 048
  11. WELCHOL [Concomitant]
     Indication: DIARRHOEA
  12. SINGULAIR [Concomitant]
     Indication: ASTHMA
     Route: 048
  13. LOMOTIL [Concomitant]
     Indication: DIARRHOEA
  14. DONNATAL [Concomitant]
     Indication: MUSCLE SPASMS
  15. CANASA [Concomitant]
     Indication: PROCTITIS
     Dosage: TWICE DAILY

REACTIONS (1)
  - Fatigue [Not Recovered/Not Resolved]
